FAERS Safety Report 18749699 (Version 1)
Quarter: 2021Q1

REPORT INFORMATION
  Report Type: Spontaneous
  Country: SE (occurrence: SE)
  Receive Date: 20210117
  Receipt Date: 20210117
  Transmission Date: 20210419
  Serious: Yes (Other)
  Sender: FDA-Public Use
  Company Number: SE-TEVA-2021-SE-1868642

PATIENT
  Age: 48 Year
  Sex: Female

DRUGS (1)
  1. ESCITALOPRAM [Suspect]
     Active Substance: ESCITALOPRAM OXALATE
     Indication: PREMENSTRUAL DYSPHORIC DISORDER
     Dates: start: 202008, end: 202008

REACTIONS (3)
  - Rash [Recovered/Resolved]
  - Angioedema [Recovered/Resolved]
  - Pruritus [Recovered/Resolved]

NARRATIVE: CASE EVENT DATE: 202008
